FAERS Safety Report 12093633 (Version 1)
Quarter: 2016Q1

REPORT INFORMATION
  Report Type: Spontaneous
  Country: NO (occurrence: None)
  Receive Date: 20160217
  Receipt Date: 20160217
  Transmission Date: 20160526
  Serious: Yes (Other)
  Sender: FDA-Public Use
  Company Number: 2016-02857

PATIENT
  Age: 33 Year
  Sex: Male

DRUGS (2)
  1. ALOPAM (OXAZEPAM) TABLET [Suspect]
     Active Substance: OXAZEPAM
     Indication: PRODUCT USED FOR UNKNOWN INDICATION
     Route: 048
  2. ZELDOX [Suspect]
     Active Substance: ZIPRASIDONE
     Indication: PRODUCT USED FOR UNKNOWN INDICATION

REACTIONS (8)
  - Impaired driving ability [None]
  - Obsessive thoughts [None]
  - Anxiety [None]
  - Disturbance in attention [None]
  - Drug prescribing error [None]
  - Fear [None]
  - Weight increased [None]
  - Drug effect incomplete [None]
